FAERS Safety Report 5049529-6 (Version None)
Quarter: 2006Q3

REPORT INFORMATION
  Report Type: 
  Country: None (occurrence: None)
  Receive Date: 20060711
  Receipt Date: 20060711
  Transmission Date: 20061208
  Serious: Yes (Other)
  Sender: FDA-Public Use
  Company Number: None

PATIENT
  Age: 35 Year
  Sex: Female
  Weight: 90.7194 kg

DRUGS (4)
  1. EFFEXOR [Suspect]
     Indication: DEPRESSION
     Dosage: 25 MG DAILY PO
     Route: 048
  2. EFFEXOR [Suspect]
     Indication: OBSESSIVE-COMPULSIVE DISORDER
     Dosage: 25 MG DAILY PO
     Route: 048
  3. LUVOX [Concomitant]
  4. BUSPAR [Concomitant]

REACTIONS (4)
  - AGITATION [None]
  - HALLUCINATIONS, MIXED [None]
  - HYPERTENSION [None]
  - RESTLESSNESS [None]
